FAERS Safety Report 6831567-1 (Version None)
Quarter: 2010Q3

REPORT INFORMATION
  Report Type: 
  Country: None (occurrence: None)
  Receive Date: 20100712
  Receipt Date: 20100629
  Transmission Date: 20110219
  Serious: Yes (Other)
  Sender: FDA-Public Use
  Company Number: PHHY2010FR35940

PATIENT
  Age: 30 Year
  Sex: Female

DRUGS (3)
  1. METOPIRONE [Suspect]
     Dosage: 03 G, ONCE
     Route: 048
     Dates: start: 20100504
  2. CORTICOSTEROIDS [Concomitant]
  3. DECTANCYL [Concomitant]

REACTIONS (2)
  - ABORTION INDUCED [None]
  - DRUG EXPOSURE DURING PREGNANCY [None]
